FAERS Safety Report 11577469 (Version 1)
Quarter: 2015Q3

REPORT INFORMATION
  Report Type: Report from Study
  Country: US (occurrence: US)
  Receive Date: 20150930
  Receipt Date: 20150930
  Transmission Date: 20151125
  Serious: Yes (Other)
  Sender: FDA-Public Use
  Company Number: PHEH2015US018961

PATIENT
  Age: 5 Year
  Sex: Female

DRUGS (1)
  1. AFINITOR [Suspect]
     Active Substance: EVEROLIMUS
     Indication: GANGLIOGLIOMA
     Dosage: 5 MG ALTERNATING WITH 7.5 MG EVERY OTHER DAY, QOD
     Route: 048
     Dates: start: 20130726, end: 20150608

REACTIONS (4)
  - Seizure [Recovering/Resolving]
  - Drug level decreased [Unknown]
  - Complex partial seizures [Recovering/Resolving]
  - Increased appetite [Recovering/Resolving]

NARRATIVE: CASE EVENT DATE: 201509
